FAERS Safety Report 4425463-7 (Version None)
Quarter: 2004Q3

REPORT INFORMATION
  Report Type: 
  Country: None (occurrence: None)
  Receive Date: 20040719
  Receipt Date: 20030612
  Transmission Date: 20050211
  Serious: Yes (Hospitalization)
  Sender: FDA-Public Use
  Company Number: 174179

PATIENT
  Age: 45 Year
  Sex: Female
  Weight: 77.5651 kg

DRUGS (4)
  1. AVONEX [Suspect]
     Indication: MULTIPLE SCLEROSIS
     Dosage: 30 MCG QW IM
     Route: 030
     Dates: start: 20030401
  2. CELEBREX [Concomitant]
  3. ZANAFLEX [Concomitant]
  4. ACIPHEX [Concomitant]

REACTIONS (2)
  - INFLUENZA LIKE ILLNESS [None]
  - URINARY TRACT INFECTION [None]
